FAERS Safety Report 8874812 (Version 1)
Quarter: 2012Q4

REPORT INFORMATION
  Report Type: 
  Country: US (occurrence: US)
  Receive Date: 20121026
  Receipt Date: 20121026
  Transmission Date: 20130627
  Serious: No
  Sender: FDA-Public Use
  Company Number: US-AMGEN-USASP2012042535

PATIENT
  Age: 68 Year
  Sex: Female
  Weight: 81.63 kg

DRUGS (15)
  1. ENBREL [Suspect]
     Indication: PRODUCT USED FOR UNKNOWN INDICATION
     Dosage: 50 mg, qwk
     Route: 058
  2. PREMARIN [Concomitant]
     Dosage: 0.3 mg, UNK
  3. METHOTREXATE [Concomitant]
     Dosage: 2.5 mg, UNK
  4. PRILOSEC                           /00661201/ [Concomitant]
     Dosage: 10 mg, UNK
  5. TEMAZEPAM [Concomitant]
     Dosage: 7.5 mg, UNK
  6. RANITIDINE [Concomitant]
     Dosage: 150 mg, UNK
  7. LUTEIN                             /01638501/ [Concomitant]
     Dosage: 6 mg, UNK
  8. VITAMIN D /00107901/ [Concomitant]
     Dosage: 400 unit, UNK
  9. FISH OIL [Concomitant]
     Dosage: UNK
  10. OCUVITE                            /01053801/ [Concomitant]
     Dosage: UNK
  11. CALCIUM [Concomitant]
     Dosage: 500 UNK, UNK
  12. MULTIVITAMIN [Concomitant]
     Dosage: UNK
  13. FOLIC ACID [Concomitant]
     Dosage: UNK
  14. MOTRIN IB [Concomitant]
     Dosage: 200 mg, UNK
  15. CARTIA XT [Concomitant]
     Dosage: 120/24 Hr

REACTIONS (2)
  - Nausea [Unknown]
  - Injection site reaction [Unknown]
